FAERS Safety Report 22032590 (Version 2)
Quarter: 2025Q1

REPORT INFORMATION
  Report Type: Spontaneous
  Country: CZ (occurrence: CZ)
  Receive Date: 20230224
  Receipt Date: 20250306
  Transmission Date: 20250408
  Serious: Yes (Hospitalization, Other)
  Sender: VELOXIS PHARMACEUTICALS
  Company Number: CZ-EMA-20151209-AUTODUP-452024

PATIENT
  Age: 21 Year
  Sex: Female

DRUGS (7)
  1. TACROLIMUS [Suspect]
     Active Substance: TACROLIMUS
     Indication: Immunosuppression
  2. MYCOPHENOLATE MOFETIL [Suspect]
     Active Substance: MYCOPHENOLATE MOFETIL
     Indication: Immunosuppression
  3. METHYLPREDNISOLONE [Suspect]
     Active Substance: METHYLPREDNISOLONE
     Indication: Product used for unknown indication
  4. RITUXIMAB [Suspect]
     Active Substance: RITUXIMAB
     Indication: Transplant rejection
  5. BORTEZOMIB [Suspect]
     Active Substance: BORTEZOMIB
     Indication: Transplant rejection
  6. PREDNISONE [Suspect]
     Active Substance: PREDNISONE
     Indication: Immunosuppression
  7. IMMUNE GLOBULIN NOS [Suspect]
     Active Substance: IMMUNE GLOBULIN NOS
     Indication: Transplant rejection

REACTIONS (4)
  - Thrombocytopenia [Unknown]
  - Anaemia [Unknown]
  - Cytomegalovirus infection [Unknown]
  - Off label use [Unknown]
